FAERS Safety Report 6191670-9 (Version None)
Quarter: 2009Q2

REPORT INFORMATION
  Report Type: 
  Country: None (occurrence: None)
  Receive Date: 20090515
  Receipt Date: 20090511
  Transmission Date: 20091009
  Serious: Yes (Hospitalization)
  Sender: FDA-Public Use
  Company Number: PHHY2009MX17138

PATIENT
  Age: 67 Year
  Sex: Male

DRUGS (2)
  1. DIOVAN HCT [Suspect]
     Indication: HYPERTENSION
     Dosage: 0.5 DF PER DAY
     Route: 048
     Dates: start: 20080101, end: 20090501
  2. DIOVAN HCT [Suspect]
     Dosage: UNK
     Dates: start: 20090506

REACTIONS (1)
  - TYPHOID FEVER [None]
